FAERS Safety Report 6083649-2 (Version None)
Quarter: 2009Q1

REPORT INFORMATION
  Report Type: 
  Country: None (occurrence: None)
  Receive Date: 20090219
  Receipt Date: 20090209
  Transmission Date: 20090719
  Serious: Yes (Other)
  Sender: FDA-Public Use
  Company Number: PHEH2006US14750

PATIENT
  Sex: Female
  Weight: 85.261 kg

DRUGS (2)
  1. AREDIA [Suspect]
  2. ZOMETA [Suspect]

REACTIONS (7)
  - ANXIETY [None]
  - DECREASED INTEREST [None]
  - GENERAL PHYSICAL HEALTH DETERIORATION [None]
  - LEUKODYSTROPHY [None]
  - OSTEONECROSIS [None]
  - PAIN [None]
  - SPINAL OSTEOARTHRITIS [None]
